FAERS Safety Report 8096741-8 (Version None)
Quarter: 2012Q1

REPORT INFORMATION
  Report Type: 
  Country: None (occurrence: None)
  Receive Date: 20120129
  Receipt Date: 20111110
  Transmission Date: 20120608
  Serious: No
  Sender: FDA-Public Use
  Company Number: US-ABBOTT-11P-163-0858374-00

PATIENT
  Sex: Female

DRUGS (8)
  1. POTASSIUM CHLORIDE [Concomitant]
     Indication: MUSCLE SPASMS
     Dosage: AS REQUIRED DAILY
  2. METOPROLOL TARTRATE [Concomitant]
     Indication: HYPERTENSION
  3. TRAVATAN [Concomitant]
     Indication: GLAUCOMA
     Dosage: 1 PER EYE QOD
  4. STOOL SOFTNERS [Concomitant]
     Indication: PRODUCT USED FOR UNKNOWN INDICATION
     Dosage: AS NEEDED
  5. HUMIRA [Suspect]
  6. NEXIUM [Concomitant]
     Indication: DYSPEPSIA
  7. HUMIRA [Suspect]
     Indication: PSORIATIC ARTHROPATHY
     Dates: start: 20101101
  8. AMLODIPINE [Concomitant]
     Indication: HYPERTENSION

REACTIONS (14)
  - NEPHROLITHIASIS [None]
  - EYE INJURY [None]
  - ARTHRITIS [None]
  - INJECTION SITE HAEMORRHAGE [None]
  - EYE HAEMORRHAGE [None]
  - FUNGAL INFECTION [None]
  - POLLAKIURIA [None]
  - ANXIETY [None]
  - INTERVERTEBRAL DISC DEGENERATION [None]
  - CYSTITIS [None]
  - CONTUSION [None]
  - EXOSTOSIS [None]
  - PAIN [None]
  - HEADACHE [None]
